FAERS Safety Report 6986488-0 (Version None)
Quarter: 2010Q3

REPORT INFORMATION
  Report Type: 
  Country: None (occurrence: None)
  Receive Date: 20100915
  Receipt Date: 20090708
  Transmission Date: 20110219
  Serious: No
  Sender: FDA-Public Use
  Company Number: US-WYE-H10059509

PATIENT
  Sex: Female

DRUGS (2)
  1. PRISTIQ [Suspect]
     Indication: DEPRESSION
     Route: 048
     Dates: start: 20090401, end: 20090706
  2. LEVOTHYROXINE [Suspect]
     Dosage: UNKNOWN
     Dates: start: 20090401

REACTIONS (2)
  - NAUSEA [None]
  - WEIGHT DECREASED [None]
